FAERS Safety Report 9085413 (Version 1)
Quarter: 2013Q1

REPORT INFORMATION
  Report Type: Report from Study
  Country: US (occurrence: US)
  Receive Date: 20130130
  Receipt Date: 20130130
  Transmission Date: 20140127
  Serious: No
  Sender: FDA-Public Use
  Company Number: US-ABBOTT-12P-163-0981895-00

PATIENT
  Age: 40 Year
  Sex: Female

DRUGS (5)
  1. HUMIRA [Suspect]
     Indication: RHEUMATOID ARTHRITIS
  2. LISINOPRIL HCTZ [Concomitant]
     Indication: HYPERTENSION
     Dosage: 20/12.5MG
  3. PROTONIX [Concomitant]
     Indication: GASTROOESOPHAGEAL REFLUX DISEASE
  4. IBUPROFEN [Concomitant]
     Indication: OSTEOARTHRITIS
     Dosage: UP TO 3 TIMES DAILY
  5. CYMBALTA [Concomitant]
     Indication: OSTEOARTHRITIS

REACTIONS (1)
  - Pain [Not Recovered/Not Resolved]
